FAERS Safety Report 20938855 (Version 1)
Quarter: 2022Q2

REPORT INFORMATION
  Report Type: Spontaneous
  Country: US (occurrence: None)
  Receive Date: 20220609
  Receipt Date: 20220609
  Transmission Date: 20220721
  Serious: No
  Sender: FDA-Public Use
  Company Number: 2022A202140

PATIENT
  Age: 913 Month
  Sex: Female

DRUGS (1)
  1. CALQUENCE [Suspect]
     Active Substance: ACALABRUTINIB
     Route: 048
     Dates: start: 20211010

REACTIONS (5)
  - Muscle spasms [Unknown]
  - Pain in jaw [Unknown]
  - Headache [Unknown]
  - Myalgia [Unknown]
  - Bone pain [Unknown]

NARRATIVE: CASE EVENT DATE: 20211001
